FAERS Safety Report 6793335-9 (Version None)
Quarter: 2010Q2

REPORT INFORMATION
  Report Type: 
  Country: None (occurrence: None)
  Receive Date: 20100624
  Receipt Date: 20091203
  Transmission Date: 20101027
  Serious: Yes (Death)
  Sender: FDA-Public Use
  Company Number: US-MYLANLABS-2009S1020854

PATIENT
  Age: 88 Year
  Sex: Female

DRUGS (5)
  1. CLOZAPINE [Suspect]
     Route: 048
     Dates: end: 20091101
  2. AMOXICILLIN [Concomitant]
  3. BACTRIM [Concomitant]
  4. XANAX [Concomitant]
  5. METFORMIN HCL [Concomitant]

REACTIONS (1)
  - DEATH [None]
